FAERS Safety Report 15226640 (Version 2)
Quarter: 2018Q3

REPORT INFORMATION
  Report Type: Spontaneous
  Country: AU (occurrence: AU)
  Receive Date: 20180801
  Receipt Date: 20180911
  Transmission Date: 20181010
  Serious: Yes (Other)
  Sender: FDA-Public Use
  Company Number: PHHY2018AU056356

PATIENT
  Sex: Female
  Weight: 74 kg

DRUGS (2)
  1. THYROXINE [Concomitant]
     Active Substance: LEVOTHYROXINE
     Indication: PRODUCT USED FOR UNKNOWN INDICATION
     Dosage: UNK
     Route: 065
  2. DIOVAN [Suspect]
     Active Substance: VALSARTAN
     Indication: HYPERTENSION
     Dosage: 80 UG, QD
     Route: 048
     Dates: start: 20171012

REACTIONS (5)
  - Sluggishness [Unknown]
  - Heart rate decreased [Unknown]
  - Hypotension [Unknown]
  - Headache [Unknown]
  - Blood pressure increased [Unknown]
